FAERS Safety Report 9793164 (Version 2)
Quarter: 2014Q1

REPORT INFORMATION
  Report Type: Report from Study
  Country: US (occurrence: US)
  Receive Date: 20140102
  Receipt Date: 20140219
  Transmission Date: 20141002
  Serious: Yes (Hospitalization)
  Sender: FDA-Public Use
  Company Number: US-BRISTOL-MYERS SQUIBB COMPANY-19945633

PATIENT
  Age: 78 Year
  Sex: Male

DRUGS (14)
  1. ETOPOSIDE [Suspect]
     Indication: SMALL CELL LUNG CANCER
     Route: 042
     Dates: start: 20131211, end: 20131213
  2. CARBOPLATIN [Suspect]
     Indication: SMALL CELL LUNG CANCER
     Route: 042
     Dates: start: 20131211
  3. FISH OIL [Concomitant]
     Dates: start: 201310
  4. PROVENTIL [Concomitant]
     Dates: start: 2011
  5. ADVAIR [Concomitant]
     Dates: start: 2011
  6. COMBIVENT [Concomitant]
     Dates: start: 2011
  7. CARTIA XT [Concomitant]
     Dates: start: 201309
  8. TRAZODONE HCL [Concomitant]
     Dates: start: 201107
  9. ROFLUMILAST [Concomitant]
     Dates: start: 2011
  10. COMPAZINE [Concomitant]
     Dates: start: 20131211
  11. DEXAMETHASONE [Concomitant]
     Dates: start: 20131212
  12. COLCRYS [Concomitant]
  13. CHLOROTHIAZIDE [Concomitant]
     Dates: start: 201309
  14. MULTIVITAMIN [Concomitant]

REACTIONS (2)
  - Chronic obstructive pulmonary disease [Recovered/Resolved]
  - Bacteraemia [Not Recovered/Not Resolved]
